FAERS Safety Report 9343166 (Version 1)
Quarter: 2013Q2

REPORT INFORMATION
  Report Type: Other
  Country: SE (occurrence: SE)
  Receive Date: 20130611
  Receipt Date: 20130611
  Transmission Date: 20140414
  Serious: Yes (Hospitalization)
  Sender: FDA-Public Use
  Company Number: SE-WATSON-2013-10732

PATIENT
  Age: 46 Year
  Sex: Female

DRUGS (2)
  1. DIAZEPAM (UNKNOWN) [Suspect]
     Indication: PRODUCT USED FOR UNKNOWN INDICATION
     Dosage: OVERDOSE WITH UNKNOWN AMOUNT OF TABLETS
     Route: 065
  2. THERALENE [Suspect]
     Indication: PRODUCT USED FOR UNKNOWN INDICATION
     Dosage: OVERDOSE WITH UNKNOWN AMOUNT OF TABLETS
     Route: 065

REACTIONS (3)
  - Loss of consciousness [Unknown]
  - Poisoning [Unknown]
  - Overdose [Unknown]
